FAERS Safety Report 9433491 (Version 1)
Quarter: 2013Q3

REPORT INFORMATION
  Report Type: Spontaneous
  Country: GB (occurrence: GB)
  Receive Date: 20130731
  Receipt Date: 20130731
  Transmission Date: 20140515
  Serious: Yes (Other)
  Sender: FDA-Public Use
  Company Number: GB-MYLANLABS-2013S1015995

PATIENT
  Age: 25 Year
  Sex: Male
  Weight: 76.2 kg

DRUGS (2)
  1. DOXYCYCLINE [Suspect]
     Indication: BACTERIAL INFECTION
     Route: 048
  2. CITALOPRAM [Concomitant]
     Indication: PRODUCT USED FOR UNKNOWN INDICATION

REACTIONS (4)
  - Headache [Not Recovered/Not Resolved]
  - Nausea [Not Recovered/Not Resolved]
  - Dyspnoea [Not Recovered/Not Resolved]
  - Vomiting [Not Recovered/Not Resolved]
